FAERS Safety Report 9409317 (Version 2)
Quarter: 2014Q1

REPORT INFORMATION
  Report Type: Spontaneous
  Country: US (occurrence: US)
  Receive Date: 20130719
  Receipt Date: 20140306
  Transmission Date: 20141002
  Serious: Yes (Hospitalization, Other)
  Sender: FDA-Public Use
  Company Number: US-BAYER-2013-085288

PATIENT
  Age: 22 Year
  Sex: Female
  Weight: 113.38 kg

DRUGS (3)
  1. MIRENA [Suspect]
     Indication: CONTRACEPTION
     Dosage: 20 MCG/24HR, CONT
     Route: 015
     Dates: start: 20090120, end: 20110822
  2. PERCOCET [Concomitant]
  3. IBUPROFEN [Concomitant]

REACTIONS (11)
  - Uterine perforation [None]
  - Uterine haemorrhage [None]
  - Ectopic pregnancy with contraceptive device [None]
  - Abdominal pain [None]
  - Pelvic pain [None]
  - Pelvic fluid collection [None]
  - Drug ineffective [None]
  - Injury [None]
  - Emotional distress [None]
  - Anxiety [None]
  - Psychological trauma [None]
